FAERS Safety Report 10287288 (Version 1)
Quarter: 2014Q3

REPORT INFORMATION
  Report Type: Report from Study
  Country: CA (occurrence: CA)
  Receive Date: 20140709
  Receipt Date: 20140709
  Transmission Date: 20150326
  Serious: Yes (Hospitalization)
  Sender: FDA-Public Use
  Company Number: CA-JNJFOC-20140703368

PATIENT
  Age: 20 Year
  Sex: Male
  Weight: 76.2 kg

DRUGS (1)
  1. REMICADE [Suspect]
     Active Substance: INFLIXIMAB
     Indication: COLITIS ULCERATIVE
     Route: 042
     Dates: start: 201311, end: 201402

REACTIONS (1)
  - Colectomy total [Unknown]

NARRATIVE: CASE EVENT DATE: 20140201
